FAERS Safety Report 6890649-9 (Version None)
Quarter: 2010Q3

REPORT INFORMATION
  Report Type: 
  Country: None (occurrence: None)
  Receive Date: 20100731
  Receipt Date: 20090126
  Transmission Date: 20110219
  Serious: No
  Sender: FDA-Public Use
  Company Number: US-PFIZER INC-2008096751

PATIENT
  Sex: Male
  Weight: 73.469 kg

DRUGS (7)
  1. LIPITOR [Suspect]
     Indication: HYPERLIPIDAEMIA
     Dosage: 10 MG, 1X/DAY
     Dates: start: 20060801, end: 20080201
  2. LIPITOR [Suspect]
     Indication: CORONARY ARTERY DISEASE
  3. ALTACE [Concomitant]
     Dosage: UNK
  4. ACETYLSALICYLIC ACID ENTERIC COATED [Concomitant]
     Dosage: UNK
  5. MULTI-VITAMINS [Concomitant]
     Dosage: UNK
  6. CALCIUM [Concomitant]
     Dosage: UNK
  7. ZINC [Concomitant]
     Dosage: UNK

REACTIONS (1)
  - ALOPECIA [None]
